FAERS Safety Report 8908174 (Version 1)
Quarter: 2012Q4

REPORT INFORMATION
  Report Type: 
  Country: US (occurrence: US)
  Receive Date: 20121114
  Receipt Date: 20121114
  Transmission Date: 20130627
  Serious: No
  Sender: FDA-Public Use
  Company Number: US-PFIZER INC-2012281451

PATIENT
  Age: 82 Year
  Sex: Female
  Weight: 52 kg

DRUGS (2)
  1. ESTRING [Suspect]
     Indication: URINARY INFECTION
     Dosage: UNK
     Route: 067
     Dates: start: 201204, end: 20121028
  2. SIMVASTATIN [Concomitant]
     Indication: HIGH CHOLESTEROL
     Dosage: 40 mg, daily

REACTIONS (2)
  - Vulvovaginal burning sensation [Recovered/Resolved]
  - Vulvovaginal pruritus [Recovered/Resolved]
